FAERS Safety Report 5046025-7 (Version None)
Quarter: 2006Q2

REPORT INFORMATION
  Report Type: 
  Country: None (occurrence: None)
  Receive Date: 20060629
  Receipt Date: 20060616
  Transmission Date: 20061013
  Serious: Yes (Other)
  Sender: FDA-Public Use
  Company Number: 2006057698

PATIENT
  Age: 67 Year
  Sex: Female
  Weight: 56.6996 kg

DRUGS (13)
  1. NEURONTIN [Suspect]
     Indication: COMPLEX REGIONAL PAIN SYNDROME
     Dosage: 1000 MG (1 D),
  2. TRANXENE [Concomitant]
  3. ESTRATEST [Concomitant]
  4. ZYRTEC [Concomitant]
  5. CARDIZEM SR (DILTIAZEM HYDROCHLORIDE) [Concomitant]
  6. INDERAL [Concomitant]
  7. NEXIUM [Concomitant]
  8. DARVON [Concomitant]
  9. CORTISONE ACETATE [Concomitant]
  10. PREDNISONE TAB [Concomitant]
  11. LIDOCAINE [Concomitant]
  12. VITAMIN B (VITAMIN B) [Concomitant]
  13. STRESSTABS (VITAMINS NOS) [Concomitant]

REACTIONS (9)
  - BLOOD CHOLESTEROL INCREASED [None]
  - CONTUSION [None]
  - CYSTITIS [None]
  - FALL [None]
  - FATIGUE [None]
  - GASTROENTERITIS VIRAL [None]
  - HERPES ZOSTER [None]
  - INADEQUATE ANALGESIA [None]
  - WEIGHT DECREASED [None]
